FAERS Safety Report 7215192-9 (Version None)
Quarter: 2011Q1

REPORT INFORMATION
  Report Type: 
  Country: None (occurrence: None)
  Receive Date: 20110107
  Receipt Date: 20101015
  Transmission Date: 20110831
  Serious: No
  Sender: FDA-Public Use
  Company Number: A0887106A

PATIENT
  Sex: Male

DRUGS (5)
  1. LOVAZA [Suspect]
     Dosage: 2CAP TWICE PER DAY
     Route: 048
     Dates: start: 20080101
  2. VITAMIN D [Concomitant]
  3. FLAX SEED OIL [Concomitant]
  4. CENTRUM MULTI VITAMINS [Concomitant]
  5. PRAVASTATIN [Concomitant]

REACTIONS (1)
  - SKIN ODOUR ABNORMAL [None]
